FAERS Safety Report 11278377 (Version 1)
Quarter: 2015Q3

REPORT INFORMATION
  Report Type: Spontaneous
  Country: US (occurrence: None)
  Receive Date: 20150715
  Receipt Date: 20150715
  Transmission Date: 20151125
  Serious: No
  Sender: FDA-Public Use
  Company Number: DL2015-0655

PATIENT
  Age: 23 Year
  Sex: Female

DRUGS (3)
  1. AZITHROMYCIN, 500 MGPO, ONC [Concomitant]
  2. MIFEPRISTONE TABLETS, 200 MG (DANCO LABS) [Suspect]
     Active Substance: MIFEPRISTONE
     Indication: ABORTION INDUCED
     Route: 048
     Dates: start: 20150213
  3. MISOPROSTOL TABLETS, 200 MCG [Suspect]
     Active Substance: MISOPROSTOL
     Dates: start: 20150214

REACTIONS (3)
  - Dizziness [None]
  - Abortion incomplete [None]
  - Haemorrhage [None]

NARRATIVE: CASE EVENT DATE: 20150219
